FAERS Safety Report 5726266-3 (Version None)
Quarter: 2008Q2

REPORT INFORMATION
  Report Type: 
  Country: None (occurrence: None)
  Receive Date: 20080502
  Receipt Date: 20080414
  Transmission Date: 20081010
  Serious: Yes (Life-Threatening)
  Sender: FDA-Public Use
  Company Number: ES-AVENTIS-200813416GDDC

PATIENT
  Age: 87 Year
  Sex: Female

DRUGS (5)
  1. DAONIL [Suspect]
     Route: 048
     Dates: start: 20070905, end: 20070910
  2. SEGURIL                            /00032601/ [Suspect]
     Route: 048
  3. ENALAPRIL [Suspect]
     Route: 048
  4. LORMETAZEPAM [Concomitant]
     Route: 048
  5. HALOPERIDOL [Concomitant]
     Route: 048
     Dates: start: 20070801

REACTIONS (2)
  - DRUG INTERACTION [None]
  - HYPOGLYCAEMIC UNCONSCIOUSNESS [None]
